FAERS Safety Report 23738862 (Version 2)
Quarter: 2024Q3

REPORT INFORMATION
  Report Type: Spontaneous
  Country: DE (occurrence: DE)
  Receive Date: 20240413
  Receipt Date: 20240709
  Transmission Date: 20241016
  Serious: Yes (Hospitalization)
  Sender: ROCHE
  Company Number: DE-002147023-NVSC2024DE074530

PATIENT
  Sex: Female
  Weight: 58 kg

DRUGS (1)
  1. XOLAIR [Suspect]
     Active Substance: OMALIZUMAB
     Indication: Urticaria aquagenic
     Dosage: 300 MG, Q2W
     Route: 058
     Dates: start: 20221001

REACTIONS (4)
  - Skin reaction [Not Recovered/Not Resolved]
  - Off label use [Unknown]
  - Pruritus [Recovering/Resolving]
  - Incorrect route of product administration [Unknown]

NARRATIVE: CASE EVENT DATE: 20221001
